FAERS Safety Report 19839848 (Version 2)
Quarter: 2021Q4

REPORT INFORMATION
  Report Type: Other
  Country: US (occurrence: None)
  Receive Date: 20210916
  Receipt Date: 20211108
  Transmission Date: 20220303
  Serious: Yes (Other)
  Sender: FDA-Public Use
  Company Number: US-ROCHE-2907168

PATIENT
  Sex: Female

DRUGS (1)
  1. XELODA [Suspect]
     Active Substance: CAPECITABINE
     Indication: Colorectal cancer metastatic
     Dosage: TAKE 4 TABLETS BY MOUTH IN THE MORNING AND TAKE 3 TABLETS BY MOUTH IN THE EVENING AFTER MEALS 2
     Route: 048

REACTIONS (2)
  - Fall [Unknown]
  - Ankle fracture [Unknown]
